FAERS Safety Report 19894610 (Version 2)
Quarter: 2021Q4

REPORT INFORMATION
  Report Type: Other
  Country: CA (occurrence: CA)
  Receive Date: 20210928
  Receipt Date: 20211024
  Transmission Date: 20220303
  Serious: No
  Sender: FDA-Public Use
  Company Number: CA-ROCHE-2482266

PATIENT
  Sex: Female

DRUGS (2)
  1. OCREVUS [Suspect]
     Active Substance: OCRELIZUMAB
     Indication: Primary progressive multiple sclerosis
     Dosage: 300 MG AT DAY 0 AND 14, THEN 600 MG EVERY 6 MONTH.?RECENT INFUSION DATE: 14/JUN/2019
     Route: 042
     Dates: start: 20181127
  2. GABAPENTIN [Suspect]
     Active Substance: GABAPENTIN
     Indication: Pain
     Route: 065

REACTIONS (9)
  - Fatigue [Unknown]
  - Arthralgia [Unknown]
  - Influenza like illness [Unknown]
  - Temperature intolerance [Unknown]
  - Hypotonia [Recovered/Resolved]
  - Muscular weakness [Recovered/Resolved]
  - Sedation [Recovered/Resolved]
  - Influenza [Not Recovered/Not Resolved]
  - Rhinorrhoea [Not Recovered/Not Resolved]
